FAERS Safety Report 8439741-8 (Version None)
Quarter: 2012Q2

REPORT INFORMATION
  Report Type: 
  Country: None (occurrence: None)
  Receive Date: 20120615
  Receipt Date: 20120606
  Transmission Date: 20120825
  Serious: Yes (Other)
  Sender: FDA-Public Use
  Company Number: BR-ABBOTT-12P-020-0943220-00

PATIENT
  Age: 53 Year
  Sex: Female

DRUGS (1)
  1. HUMIRA [Suspect]
     Indication: CROHN'S DISEASE

REACTIONS (5)
  - HEPATIC INFECTION [None]
  - SEPTIC SHOCK [None]
  - LIVER INJURY [None]
  - PANCREATITIS [None]
  - PYREXIA [None]
